FAERS Safety Report 5482125-5 (Version None)
Quarter: 2007Q4

REPORT INFORMATION
  Report Type: 
  Country: None (occurrence: None)
  Receive Date: 20071011
  Receipt Date: 20071002
  Transmission Date: 20080405
  Serious: Yes (Other)
  Sender: FDA-Public Use
  Company Number: US-JNJFOC-20070902228

PATIENT
  Sex: Male
  Weight: 88.91 kg

DRUGS (10)
  1. REMICADE [Suspect]
     Route: 042
  2. REMICADE [Suspect]
     Route: 042
  3. REMICADE [Suspect]
     Route: 042
  4. REMICADE [Suspect]
     Indication: CROHN'S DISEASE
     Route: 042
  5. REMICADE [Suspect]
     Route: 042
  6. AZATHIOPRINE [Concomitant]
  7. ARACOL [Concomitant]
     Dosage: 400 MG, 4 TABLETS, 3 TIMES DAILY
  8. KLONOPIN [Concomitant]
  9. FENTANYL [Concomitant]
     Route: 062
  10. AMITRIPTYLINE HCL [Concomitant]

REACTIONS (2)
  - CHEST PAIN [None]
  - LUPUS-LIKE SYNDROME [None]
